FAERS Safety Report 5014592-5 (Version None)
Quarter: 2006Q2

REPORT INFORMATION
  Report Type: 
  Country: None (occurrence: None)
  Receive Date: 20060525
  Receipt Date: 20060505
  Transmission Date: 20061013
  Serious: Yes (Hospitalization)
  Sender: FDA-Public Use
  Company Number: US200605001809

PATIENT
  Age: 25 Year
  Sex: Female

DRUGS (1)
  1. CYMBALTA [Suspect]
     Dosage: 60 MG
     Dates: start: 20060321, end: 20060401

REACTIONS (2)
  - BLOOD PRESSURE SYSTOLIC INCREASED [None]
  - STAPHYLOCOCCAL ABSCESS [None]
